FAERS Safety Report 16130451 (Version 1)
Quarter: 2019Q1

REPORT INFORMATION
  Report Type: Spontaneous
  Country: FR (occurrence: FR)
  Receive Date: 20190328
  Receipt Date: 20190328
  Transmission Date: 20190418
  Serious: Yes (Other)
  Sender: FDA-Public Use
  Company Number: FR-MYLANLABS-2019M1028085

PATIENT
  Age: 86 Year
  Sex: Male

DRUGS (6)
  1. RIVOTRIL [Suspect]
     Active Substance: CLONAZEPAM
     Indication: EPILEPSY
     Dosage: 2 MILLIGRAM, QD
     Route: 042
     Dates: start: 20181008, end: 20181012
  2. SCOPODERM                          /00008701/ [Concomitant]
     Active Substance: SCOPOLAMINE
     Indication: PALLIATIVE CARE
     Dosage: 3 DOSAGE FORM, QD
     Route: 003
  3. PARACETAMOL [Concomitant]
     Active Substance: ACETAMINOPHEN
     Indication: PAIN
     Dosage: UNK
     Dates: end: 20181012
  4. LEVETIRACETAM MYLAN 100 MG/ML, SOLUTION ? DILUER POUR PERFUSION [Suspect]
     Active Substance: LEVETIRACETAM
     Indication: EPILEPSY
     Dosage: 1000 MILLIGRAM, QD
     Route: 042
     Dates: start: 20181007, end: 20181012
  5. CEFOTAXIME MYLAN GENERICS [Suspect]
     Active Substance: CEFOTAXIME SODIUM
     Indication: INFECTION
     Dosage: 4 GRAM, QD
     Route: 042
     Dates: start: 20181007, end: 20181012
  6. MORPHINE LAVOISIER [Suspect]
     Active Substance: MORPHINE HYDROCHLORIDE
     Indication: PAIN
     Dosage: UNK
     Route: 042
     Dates: start: 20181008, end: 20181012

REACTIONS (2)
  - Skin erosion [Not Recovered/Not Resolved]
  - Dermatitis bullous [Not Recovered/Not Resolved]

NARRATIVE: CASE EVENT DATE: 20181011
